FAERS Safety Report 19660353 (Version 1)
Quarter: 2021Q3

REPORT INFORMATION
  Report Type: Spontaneous
  Country: IN (occurrence: IN)
  Receive Date: 20210805
  Receipt Date: 20210805
  Transmission Date: 20211014
  Serious: Yes (Hospitalization)
  Sender: FDA-Public Use
  Company Number: IN-MYLANLABS-2021M1048379

PATIENT
  Sex: Female

DRUGS (5)
  1. AMIODARONE [Suspect]
     Active Substance: AMIODARONE
     Indication: ATRIAL FLUTTER
     Dosage: 5 MILLIGRAM/KILOGRAM
     Route: 042
  2. AMIODARONE [Suspect]
     Active Substance: AMIODARONE
     Dosage: 5 MICROGRAM/KILOGRAM, QMINUTE
     Route: 042
  3. ADENOSINE. [Suspect]
     Active Substance: ADENOSINE
     Indication: ATRIAL FLUTTER
     Dosage: THREE INCREMENTAL DOSES
     Route: 065
  4. SOTALOL. [Suspect]
     Active Substance: SOTALOL
     Indication: ATRIAL FLUTTER
     Dosage: 1MG/KG/DOSE
     Route: 048
  5. PROPRANOLOL [Suspect]
     Active Substance: PROPRANOLOL HYDROCHLORIDE
     Indication: ATRIAL FLUTTER
     Dosage: 0.5 MILLIGRAM/KILOGRAM, QD
     Route: 048

REACTIONS (1)
  - Drug ineffective [Unknown]
